FAERS Safety Report 22638210 (Version 1)
Quarter: 2023Q2

REPORT INFORMATION
  Report Type: Spontaneous
  Country: US (occurrence: None)
  Receive Date: 20230622
  Receipt Date: 20230622
  Transmission Date: 20230722
  Serious: Yes (Other)
  Sender: FDA-Public Use
  Company Number: None

PATIENT
  Age: 88 Year
  Sex: Female
  Weight: 54.43 kg

DRUGS (11)
  1. ALENDRONATE SODIUM [Suspect]
     Active Substance: ALENDRONATE SODIUM
     Indication: Bone density decreased
     Dosage: FREQUENCY : WEEKLY;?
     Route: 048
     Dates: end: 20230505
  2. levothyrodine [Concomitant]
  3. ATORVASTATIN CALCIUM [Concomitant]
     Active Substance: ATORVASTATIN CALCIUM
  4. BUDESONIDE [Concomitant]
     Active Substance: BUDESONIDE
  5. haluronic acid [Concomitant]
  6. BIOTIN [Concomitant]
     Active Substance: BIOTIN
  7. CHOLECALCIFEROL [Concomitant]
     Active Substance: CHOLECALCIFEROL
  8. FISH OIL [Concomitant]
     Active Substance: FISH OIL
  9. vitamine k12 [Concomitant]
  10. multi vitamine [Concomitant]
  11. ASPIRIN [Concomitant]
     Active Substance: ASPIRIN

REACTIONS (10)
  - Joint swelling [None]
  - Skin fissures [None]
  - Peripheral arterial reocclusion [None]
  - Joint swelling [None]
  - Peripheral swelling [None]
  - Bone pain [None]
  - Arthralgia [None]
  - Pain in extremity [None]
  - Arthralgia [None]
  - Weight bearing difficulty [None]
